FAERS Safety Report 23590450 (Version 2)
Quarter: 2024Q1

REPORT INFORMATION
  Report Type: Report from Study
  Country: US (occurrence: US)
  Receive Date: 20240304
  Receipt Date: 20240312
  Transmission Date: 20240410
  Serious: Yes (Hospitalization)
  Sender: FDA-Public Use
  Company Number: US-GILEAD-2024-0661751

PATIENT
  Sex: Female

DRUGS (3)
  1. AMBRISENTAN [Suspect]
     Active Substance: AMBRISENTAN
     Indication: Pulmonary arterial hypertension
     Dosage: 10 MG, QD
     Route: 065
     Dates: start: 20230124
  2. SILDENAFIL [Concomitant]
     Active Substance: SILDENAFIL
  3. ADEMPAS [Concomitant]
     Active Substance: RIOCIGUAT

REACTIONS (6)
  - Swelling [Unknown]
  - Hypervolaemia [Unknown]
  - Dyspnoea [Unknown]
  - Fluid retention [Unknown]
  - Dyspnoea exertional [Unknown]
  - Oedema peripheral [Unknown]
